FAERS Safety Report 5536416-X (Version None)
Quarter: 2007Q4

REPORT INFORMATION
  Report Type: 
  Country: None (occurrence: None)
  Receive Date: 20071204
  Receipt Date: 20071126
  Transmission Date: 20080405
  Serious: Yes (Death, Hospitalization)
  Sender: FDA-Public Use
  Company Number: 430013N07JPN

PATIENT
  Age: 58 Year
  Sex: Male

DRUGS (10)
  1. NOVANTRONE [Suspect]
     Indication: ACUTE MYELOID LEUKAEMIA RECURRENT
     Dosage: INTRAVENOUS
     Route: 042
     Dates: start: 20070329, end: 20070330
  2. NOVANTRONE [Suspect]
     Indication: ACUTE MYELOID LEUKAEMIA RECURRENT
     Dosage: INTRAVENOUS
     Route: 042
     Dates: start: 20070330, end: 20070330
  3. NOVANTRONE [Suspect]
     Indication: ACUTE MYELOID LEUKAEMIA RECURRENT
     Dosage: INTRAVENOUS
     Route: 042
     Dates: start: 20070413, end: 20070413
  4. NOVANTRONE [Suspect]
     Indication: ACUTE MYELOID LEUKAEMIA RECURRENT
     Dosage: INTRAVENOUS
     Route: 042
     Dates: start: 20070425, end: 20070425
  5. MYLOTARG [Suspect]
     Dosage: 9 MG/M2, 1 IN 1 DAYS, INTRAVENOUS
     Route: 042
     Dates: start: 20070302, end: 20070302
  6. MYLOTARG [Suspect]
     Dosage: 9 MG/M2, 1 IN 1 DAYS, INTRAVENOUS
     Route: 042
     Dates: start: 20070316, end: 20070316
  7. ITRACONAZOLE [Suspect]
     Dosage: 200 MG, 1 IN 1 DAYS, INTRAVENOUS
     Route: 042
     Dates: start: 20070323, end: 20070405
  8. MAXIPIME [Suspect]
     Dosage: 4 G, 1 IN 1 DAYS, INTRAVENOUS,
     Route: 042
     Dates: start: 20070307, end: 20070312
  9. MAXIPIME [Suspect]
     Dosage: 4 G, 1 IN 1 DAYS, INTRAVENOUS,
     Route: 042
     Dates: start: 20070318, end: 20070331
  10. IDARUBICIN HCL [Concomitant]

REACTIONS (15)
  - ANAEMIA [None]
  - BLOOD LACTATE DEHYDROGENASE INCREASED [None]
  - BLOOD URIC ACID DECREASED [None]
  - C-REACTIVE PROTEIN INCREASED [None]
  - CONDITION AGGRAVATED [None]
  - FEBRILE NEUTROPENIA [None]
  - GASTROINTESTINAL HAEMORRHAGE [None]
  - HAEMATEMESIS [None]
  - HAEMATURIA [None]
  - HYPOKALAEMIA [None]
  - HYPOPROTEINAEMIA [None]
  - JAUNDICE [None]
  - LEUKAEMIA RECURRENT [None]
  - LIVER DISORDER [None]
  - PLATELET COUNT DECREASED [None]
